FAERS Safety Report 7499279-1 (Version None)
Quarter: 2011Q2

REPORT INFORMATION
  Report Type: 
  Country: None (occurrence: None)
  Receive Date: 20110524
  Receipt Date: 20110505
  Transmission Date: 20111010
  Serious: No
  Sender: FDA-Public Use
  Company Number: US-JNJFOC-20110506026

PATIENT
  Sex: Male
  Weight: 92.5 kg

DRUGS (5)
  1. CLONAZEPAM [Concomitant]
     Route: 065
     Dates: start: 20100723
  2. ASENAPINE [Concomitant]
     Route: 065
     Dates: start: 20101222, end: 20110110
  3. REMERON [Concomitant]
     Route: 065
     Dates: start: 20100723
  4. INVEGA [Suspect]
     Indication: PRODUCT USED FOR UNKNOWN INDICATION
     Route: 048
     Dates: start: 20100924, end: 20101222
  5. RISPERDAL [Suspect]
     Indication: PRODUCT USED FOR UNKNOWN INDICATION
     Route: 065
     Dates: start: 20020214, end: 20100924

REACTIONS (1)
  - TREMOR [None]
